FAERS Safety Report 5775825-0 (Version None)
Quarter: 2008Q2

REPORT INFORMATION
  Report Type: 
  Country: None (occurrence: None)
  Receive Date: 20080617
  Receipt Date: 20080605
  Transmission Date: 20081010
  Serious: Yes (Hospitalization, Congenital Anomaly)
  Sender: FDA-Public Use
  Company Number: FR-WYE-G01642908

PATIENT
  Sex: Male

DRUGS (4)
  1. EFFEXOR [Suspect]
     Indication: DEPRESSION
     Route: 064
  2. MEPRONIZINE [Suspect]
     Route: 064
  3. INSULIN [Concomitant]
     Indication: TYPE 1 DIABETES MELLITUS
     Dosage: UNKNOWN
     Route: 064
  4. LEXOMIL [Suspect]
     Route: 064

REACTIONS (22)
  - AGITATION NEONATAL [None]
  - ANOTIA [None]
  - BRADYCARDIA NEONATAL [None]
  - CARDIOMYOPATHY NEONATAL [None]
  - CONGENITAL CENTRAL NERVOUS SYSTEM ANOMALY [None]
  - CONGENITAL NEUROLOGICAL DISORDER [None]
  - CONGENITAL PHARYNGEAL ANOMALY [None]
  - DRUG EXPOSURE DURING PREGNANCY [None]
  - DYSMORPHISM [None]
  - DYSPHAGIA [None]
  - EXTRAPYRAMIDAL DISORDER [None]
  - FOETAL GROWTH RETARDATION [None]
  - INFANTILE APNOEIC ATTACK [None]
  - LIMB MALFORMATION [None]
  - MICROCEPHALY [None]
  - MICROTIA [None]
  - NEONATAL RESPIRATORY DISTRESS SYNDROME [None]
  - POOR SUCKING REFLEX [None]
  - PREMATURE BABY [None]
  - SUBDURAL EFFUSION [None]
  - TRISMUS [None]
  - VENTRICULAR SEPTAL DEFECT [None]
